FAERS Safety Report 21161252 (Version 1)
Quarter: 2022Q3

REPORT INFORMATION
  Report Type: Spontaneous
  Country: US (occurrence: None)
  Receive Date: 20220802
  Receipt Date: 20220802
  Transmission Date: 20221027
  Serious: Yes (Hospitalization)
  Sender: FDA-Public Use
  Company Number: US-ROCHE-3152568

PATIENT
  Sex: Male

DRUGS (14)
  1. ERIVEDGE [Suspect]
     Active Substance: VISMODEGIB
     Indication: Basal cell carcinoma
     Dosage: TAKE ONE CAPSULE BY MOUTH EVERY OTHER DAY
     Route: 048
  2. ASPIRIN [Concomitant]
     Active Substance: ASPIRIN
     Dosage: 81
  3. IRON [Concomitant]
     Active Substance: IRON
  4. NITROSTAT [Concomitant]
     Active Substance: NITROGLYCERIN
  5. REPATHA [Concomitant]
     Active Substance: EVOLOCUMAB
  6. CHOLECALCIFEROL [Concomitant]
     Active Substance: CHOLECALCIFEROL
  7. FENOFIBRATE [Concomitant]
     Active Substance: FENOFIBRATE
  8. GLIPIZIDE [Concomitant]
     Active Substance: GLIPIZIDE
  9. JANUVIA [Concomitant]
     Active Substance: SITAGLIPTIN PHOSPHATE
  10. LACTULOSE [Concomitant]
     Active Substance: LACTULOSE
  11. LEVOTHYROXINE SODIUM [Concomitant]
     Active Substance: LEVOTHYROXINE SODIUM
  12. METOPROLOL TARTRATE [Concomitant]
     Active Substance: METOPROLOL TARTRATE
  13. PIOGLITAZONE HYDROCHLORIDE [Concomitant]
     Active Substance: PIOGLITAZONE HYDROCHLORIDE
  14. ZETIA [Concomitant]
     Active Substance: EZETIMIBE

REACTIONS (1)
  - Pancreas infection [Recovered/Resolved]
